FAERS Safety Report 15643869 (Version 1)
Quarter: 2018Q4

REPORT INFORMATION
  Report Type: Spontaneous
  Country: TR (occurrence: TR)
  Receive Date: 20181121
  Receipt Date: 20181121
  Transmission Date: 20190205
  Serious: Yes (Death)
  Sender: FDA-Public Use
  Company Number: TR-JNJFOC-20181100233

PATIENT
  Age: 42 Year
  Sex: Female

DRUGS (1)
  1. DARATUMUMAB [Suspect]
     Active Substance: DARATUMUMAB
     Indication: PRODUCT USED FOR UNKNOWN INDICATION
     Route: 065

REACTIONS (6)
  - Respiratory failure [Unknown]
  - Decreased interest [Unknown]
  - Apathy [Unknown]
  - Hypoaesthesia oral [Unknown]
  - Infusion related reaction [Unknown]
  - Cardiac disorder [Fatal]
